FAERS Safety Report 11965037 (Version 1)
Quarter: 2016Q1

REPORT INFORMATION
  Report Type: Spontaneous
  Country: JP (occurrence: JP)
  Receive Date: 20160127
  Receipt Date: 20160127
  Transmission Date: 20160526
  Serious: Yes (Other)
  Sender: FDA-Public Use
  Company Number: JP-BRISTOL-MYERS SQUIBB COMPANY-BMS-2016-003742

PATIENT
  Age: 64 Year
  Sex: Male

DRUGS (1)
  1. ERBITUX [Suspect]
     Active Substance: CETUXIMAB
     Indication: COLORECTAL CANCER
     Route: 041

REACTIONS (4)
  - Bradycardia [Unknown]
  - Chest pain [Unknown]
  - Sinus node dysfunction [Unknown]
  - Blood pressure decreased [Unknown]
